FAERS Safety Report 7710885-9 (Version None)
Quarter: 2011Q3

REPORT INFORMATION
  Report Type: 
  Country: None (occurrence: None)
  Receive Date: 20110825
  Receipt Date: 20110816
  Transmission Date: 20111222
  Serious: Yes (Other)
  Sender: FDA-Public Use
  Company Number: CN-GENENTECH-322955

PATIENT
  Age: 74 Year
  Sex: Male
  Weight: 52 kg

DRUGS (6)
  1. MABTHERA [Suspect]
     Indication: LYMPHOMA
     Dosage: UNK
     Route: 065
     Dates: start: 20090801
  2. XELODA [Suspect]
     Indication: COLON CANCER
     Dosage: 1500 MG, BID
     Route: 048
     Dates: start: 20110805
  3. PREDNISONE [Concomitant]
     Indication: LYMPHOMA
     Dosage: UNK
     Dates: start: 20090801
  4. VINCRISTINE [Concomitant]
     Indication: LYMPHOMA
     Dosage: UNK
     Dates: start: 20090801
  5. DOXORUBICIN HCL [Concomitant]
     Indication: LYMPHOMA
     Dosage: UNK
     Dates: start: 20090801
  6. CYCLOPHOSPHAMIDE [Concomitant]
     Indication: LYMPHOMA
     Dosage: UNK
     Dates: start: 20090801

REACTIONS (7)
  - COLON CANCER [None]
  - COLON CANCER METASTATIC [None]
  - DECREASED APPETITE [None]
  - FUNCTIONAL GASTROINTESTINAL DISORDER [None]
  - ABDOMINAL DISTENSION [None]
  - ABDOMINAL PAIN [None]
  - CONSTIPATION [None]
